FAERS Safety Report 10217437 (Version 1)
Quarter: 2014Q2

REPORT INFORMATION
  Report Type: Spontaneous
  Country: US (occurrence: US)
  Receive Date: 20140604
  Receipt Date: 20140604
  Transmission Date: 20141212
  Serious: No
  Sender: FDA-Public Use
  Company Number: US-009507513-1406USA001925

PATIENT
  Age: 75 Year
  Sex: Female

DRUGS (1)
  1. DR. SCHOLL^S ULTRA THIN CORN REMOVER [Suspect]
     Indication: PRODUCT USED FOR UNKNOWN INDICATION
     Dosage: EVERY 48 HOURS
     Route: 061
     Dates: start: 20140522, end: 20140528

REACTIONS (2)
  - Application site pain [Not Recovered/Not Resolved]
  - Skin discolouration [Not Recovered/Not Resolved]
